FAERS Safety Report 4308514-X (Version None)
Quarter: 2004Q1

REPORT INFORMATION
  Report Type: 
  Country: None (occurrence: None)
  Receive Date: 20040301
  Receipt Date: 20040220
  Transmission Date: 20041129
  Serious: Yes (Death)
  Sender: FDA-Public Use
  Company Number: PHEH2004US02194

PATIENT
  Age: 51 Year
  Sex: Male

DRUGS (12)
  1. CLOZARIL [Suspect]
     Indication: PSYCHOTIC DISORDER
     Dosage: 300 MG, QD
     Route: 048
     Dates: start: 20030915
  2. KLONOPIN [Concomitant]
  3. CARDIZEM [Concomitant]
  4. GLUCOTROL [Concomitant]
  5. CLARITIN [Concomitant]
  6. PREVACID [Concomitant]
  7. LIPITOR [Concomitant]
  8. CELEBREX [Concomitant]
  9. ZYPREXA [Concomitant]
  10. AVANDIA [Concomitant]
  11. DEPAKOTE [Concomitant]
  12. COGENTIN [Concomitant]

REACTIONS (2)
  - CONCOMITANT DISEASE PROGRESSION [None]
  - DEATH [None]
